FAERS Safety Report 5668634-4 (Version None)
Quarter: 2008Q1

REPORT INFORMATION
  Report Type: 
  Country: None (occurrence: None)
  Receive Date: 20080315
  Receipt Date: 20080227
  Transmission Date: 20080703
  Serious: No
  Sender: FDA-Public Use
  Company Number: US-ABBOTT-08P-163-0440546-00

PATIENT
  Sex: Male
  Weight: 94.432 kg

DRUGS (17)
  1. HUMIRA [Suspect]
     Indication: RHEUMATOID ARTHRITIS
     Route: 058
     Dates: start: 20071101, end: 20080214
  2. CETIRIZINE HCL [Concomitant]
     Indication: SINUS DISORDER
     Route: 048
  3. AZELASTINE HCL [Concomitant]
     Indication: SINUS DISORDER
     Route: 045
  4. RAMIPRIL [Concomitant]
     Indication: BLOOD PRESSURE
     Route: 048
  5. ACETYLSALICYLIC ACID [Concomitant]
     Indication: CARDIOVASCULAR EVENT PROPHYLAXIS
     Route: 048
  6. METHOTREXATE [Concomitant]
     Indication: RHEUMATOID ARTHRITIS
     Route: 048
  7. SERTRALINE [Concomitant]
     Indication: DEPRESSION
     Route: 048
  8. HYDROCHOLORINE [Concomitant]
     Indication: RHEUMATOID ARTHRITIS
     Route: 048
  9. CELECOXIB [Concomitant]
     Indication: RHEUMATOID ARTHRITIS
     Route: 048
  10. FOLIC ACID [Concomitant]
     Indication: VITAMIN SUPPLEMENTATION
     Route: 048
  11. ROSUVASTATIN [Concomitant]
     Indication: BLOOD CHOLESTEROL INCREASED
  12. METOPROLOL SUCCINATE [Concomitant]
     Indication: ANGINA PECTORIS
     Route: 048
  13. GLIMEPIRIDE [Concomitant]
     Indication: DIABETES MELLITUS
     Route: 048
  14. GLYCERYL TRINITRATE [Concomitant]
     Indication: MYOCARDIAL INFARCTION
     Route: 048
  15. TRAMADOL HCL [Concomitant]
     Indication: PAIN
     Route: 048
  16. TRAMADOL HCL [Concomitant]
     Indication: RHEUMATOID ARTHRITIS
  17. VITAMINS [Concomitant]
     Indication: DRUG USE FOR UNKNOWN INDICATION

REACTIONS (4)
  - INSOMNIA [None]
  - NASOPHARYNGITIS [None]
  - NAUSEA [None]
  - THROAT IRRITATION [None]
